FAERS Safety Report 10062897 (Version 1)
Quarter: 2014Q1

REPORT INFORMATION
  Report Type: Spontaneous
  Country: US (occurrence: None)
  Receive Date: 20140326
  Receipt Date: 20140326
  Transmission Date: 20141002
  Serious: Yes (Death)
  Sender: FDA-Public Use
  Company Number: 2014-00511

PATIENT
  Age: 37 Year
  Sex: Male

DRUGS (1)
  1. TRAMADOL [Suspect]

REACTIONS (1)
  - Drug abuse [None]
